FAERS Safety Report 7224707-6 (Version None)
Quarter: 2011Q1

REPORT INFORMATION
  Report Type: 
  Country: None (occurrence: None)
  Receive Date: 20110113
  Receipt Date: 20101206
  Transmission Date: 20110831
  Serious: Yes (Hospitalization)
  Sender: FDA-Public Use
  Company Number: DK-ELI_LILLY_AND_COMPANY-DK201101002285

PATIENT
  Sex: Female

DRUGS (8)
  1. EFFEXOR [Concomitant]
     Indication: DEPRESSION
     Dosage: UNK, UNK
  2. TRUXAL [Concomitant]
     Dates: start: 20050101
  3. ALPROX [Concomitant]
  4. RILAMIR [Concomitant]
     Indication: DEPRESSION
     Dates: start: 20020101, end: 20050101
  5. CYMBALTA [Suspect]
     Dosage: UNK, UNKNOWN
     Dates: start: 20050101
  6. REMERON [Concomitant]
     Dates: start: 20050101
  7. HALCINONIDE [Concomitant]
     Indication: DEPRESSION
     Dates: start: 20020101, end: 20050101
  8. RISPERDAL [Concomitant]
     Dates: start: 20050101

REACTIONS (7)
  - DYSKINESIA [None]
  - MOVEMENT DISORDER [None]
  - BLISTER [None]
  - TREMOR [None]
  - TARDIVE DYSKINESIA [None]
  - DIARRHOEA [None]
  - RESTLESSNESS [None]
